FAERS Safety Report 21645153 (Version 1)
Quarter: 2022Q4

REPORT INFORMATION
  Report Type: Report from Study
  Country: US (occurrence: US)
  Receive Date: 20221126
  Receipt Date: 20221126
  Transmission Date: 20230113
  Serious: No
  Sender: FDA-Public Use
  Company Number: US-ABBVIE-4176988

PATIENT
  Sex: Female

DRUGS (1)
  1. SKYRIZI [Suspect]
     Active Substance: RISANKIZUMAB-RZAA
     Indication: Psoriasis
     Route: 058

REACTIONS (7)
  - Illness [Unknown]
  - Nausea [Recovering/Resolving]
  - Vomiting [Unknown]
  - Thirst [Unknown]
  - Feeling cold [Unknown]
  - Chills [Unknown]
  - Nasopharyngitis [Unknown]
